FAERS Safety Report 15946972 (Version 6)
Quarter: 2021Q3

REPORT INFORMATION
  Report Type: Spontaneous
  Country: US (occurrence: US)
  Receive Date: 20190211
  Receipt Date: 20210928
  Transmission Date: 20211014
  Serious: Yes (Hospitalization, Other)
  Sender: FDA-Public Use
  Company Number: US-PFIZER INC-2019060575

PATIENT
  Age: 67 Year
  Sex: Female
  Weight: 92 kg

DRUGS (4)
  1. FASLODEX [Concomitant]
     Active Substance: FULVESTRANT
     Dosage: UNK
     Dates: start: 20190117
  2. IBRANCE [Suspect]
     Active Substance: PALBOCICLIB
     Indication: BREAST CANCER FEMALE
     Dosage: 75 MG, 1X/DAY (SINCE 4?5 YEARS AGO AS REPORTED)
     Dates: start: 2015
  3. ARIMIDEX [Concomitant]
     Active Substance: ANASTROZOLE
     Dosage: UNK
     Dates: start: 201502, end: 20190117
  4. IBRANCE [Suspect]
     Active Substance: PALBOCICLIB
     Dosage: 75 MG, CYCLIC (ONCE A DAY BY MOUTH FOR 21 DAYS, THEN A WEEK OFF)
     Route: 048
     Dates: end: 202004

REACTIONS (4)
  - White blood cell count decreased [Unknown]
  - Sepsis [Recovered/Resolved]
  - Platelet count decreased [Unknown]
  - Malaise [Unknown]

NARRATIVE: CASE EVENT DATE: 2018
